FAERS Safety Report 8103825-4 (Version None)
Quarter: 2012Q1

REPORT INFORMATION
  Report Type: 
  Country: None (occurrence: None)
  Receive Date: 20120201
  Receipt Date: 20120123
  Transmission Date: 20120608
  Serious: Yes (Hospitalization)
  Sender: FDA-Public Use
  Company Number: US-ACTELION-A-NJ2012-60217

PATIENT

DRUGS (2)
  1. TRACLEER [Suspect]
     Indication: PULMONARY ARTERIAL HYPERTENSION
     Dosage: UNK
     Route: 048
     Dates: start: 20111130
  2. REVATIO [Concomitant]

REACTIONS (6)
  - SKIN EXFOLIATION [None]
  - PRURITUS [None]
  - STEVENS-JOHNSON SYNDROME [None]
  - ORAL FUNGAL INFECTION [None]
  - PYREXIA [None]
  - SWELLING [None]
